FAERS Safety Report 16945266 (Version 1)
Quarter: 2019Q4

REPORT INFORMATION
  Report Type: Spontaneous
  Country: US (occurrence: US)
  Receive Date: 20191021
  Receipt Date: 20191021
  Transmission Date: 20200122
  Serious: Yes (Other)
  Sender: FDA-Public Use
  Company Number: None

PATIENT
  Age: 31 Year
  Sex: Female
  Weight: 65.25 kg

DRUGS (1)
  1. CYMBALTA [Suspect]
     Active Substance: DULOXETINE HYDROCHLORIDE
     Indication: FIBROMYALGIA
     Dosage: ?          QUANTITY:1 CAPSULE(S);?
     Route: 048
     Dates: start: 20191008, end: 20191021

REACTIONS (6)
  - Suicidal ideation [None]
  - Nausea [None]
  - Formication [None]
  - Disturbance in attention [None]
  - Neuralgia [None]
  - Product dose omission [None]

NARRATIVE: CASE EVENT DATE: 20191021
